FAERS Safety Report 9731213 (Version 1)
Quarter: 2013Q4

REPORT INFORMATION
  Report Type: Report from Study
  Country: CA (occurrence: CA)
  Receive Date: 20131205
  Receipt Date: 20131205
  Transmission Date: 20140711
  Serious: Yes (Hospitalization)
  Sender: FDA-Public Use
  Company Number: CA-ROCHE-1311626

PATIENT
  Age: 42 Year
  Sex: Female

DRUGS (7)
  1. CAPECITABINE [Suspect]
     Indication: PRODUCT USED FOR UNKNOWN INDICATION
     Dosage: THERAPY DURATION: 164 DAYS
     Route: 048
  2. IRINOTECAN HYDROCHLORIDE TRIHYDRATE [Suspect]
     Indication: PRODUCT USED FOR UNKNOWN INDICATION
     Dosage: THERAPY DURATION: 151 DAYS
     Route: 042
  3. ELOXATIN [Suspect]
     Indication: PRODUCT USED FOR UNKNOWN INDICATION
     Dosage: THERAPY DURATION: 151 DAYS
     Route: 042
  4. ESOMEPRAZOLE [Concomitant]
     Route: 065
  5. TYLENOL [Concomitant]
     Route: 065
  6. VITAMIN B COMPLEX [Concomitant]
     Route: 065
  7. ZOPICLONE [Concomitant]
     Route: 065

REACTIONS (2)
  - Ascites [Recovered/Resolved]
  - Pancreatitis [Recovered/Resolved]
